FAERS Safety Report 16936460 (Version 1)
Quarter: 2019Q4

REPORT INFORMATION
  Report Type: Spontaneous
  Country: US (occurrence: US)
  Receive Date: 20190827
  Receipt Date: 20190827
  Transmission Date: 20200122
  Serious: Yes (Death, Hospitalization)
  Sender: FDA-Public Use
  Company Number: None

PATIENT
  Age: 14 Year
  Sex: Female
  Weight: 47.6 kg

DRUGS (5)
  1. METHOTREXATE. [Suspect]
     Active Substance: METHOTREXATE
     Dates: end: 20190723
  2. VINCRISTINE SULFATE. [Suspect]
     Active Substance: VINCRISTINE SULFATE
     Dosage: ?          OTHER DOSE:1.5 MG;?
     Dates: end: 20190723
  3. ONCASPAR [Suspect]
     Active Substance: PEGASPARGASE
     Dates: end: 20190801
  4. CYTARABINE (63878) [Suspect]
     Active Substance: CYTARABINE
     Dates: end: 20190730
  5. DEXAMETHASONE. [Suspect]
     Active Substance: DEXAMETHASONE
     Dates: end: 20190725

REACTIONS (14)
  - Coagulopathy [None]
  - Disseminated intravascular coagulation [None]
  - Cardiopulmonary failure [None]
  - Septic shock [None]
  - Stenotrophomonas infection [None]
  - Metabolic acidosis [None]
  - Lactic acidosis [None]
  - Pneumonia fungal [None]
  - Bone marrow failure [None]
  - Febrile neutropenia [None]
  - Fungal sepsis [None]
  - Cardiac arrest [None]
  - Device related sepsis [None]
  - Bacteraemia [None]

NARRATIVE: CASE EVENT DATE: 20190810
